FAERS Safety Report 7992510-5 (Version None)
Quarter: 2011Q4

REPORT INFORMATION
  Report Type: 
  Country: None (occurrence: None)
  Receive Date: 20111219
  Receipt Date: 20111215
  Transmission Date: 20120403
  Serious: Yes (Other)
  Sender: FDA-Public Use
  Company Number: JP-PFIZER INC-2011288892

PATIENT
  Age: 55 Year
  Sex: Female

DRUGS (1)
  1. AZULFIDINE [Suspect]
     Dosage: 500 MG, UNK
     Dates: start: 20050801, end: 20080901

REACTIONS (1)
  - AUTOIMMUNE NEUTROPENIA [None]
